FAERS Safety Report 18308942 (Version 2)
Quarter: 2020Q4

REPORT INFORMATION
  Report Type: Report from Study
  Country: CO (occurrence: CO)
  Receive Date: 20200924
  Receipt Date: 20201013
  Transmission Date: 20210113
  Serious: Yes (Life-Threatening, Hospitalization)
  Sender: FDA-Public Use
  Company Number: NVSC2020CO260018

PATIENT
  Age: 40 Year
  Sex: Male
  Weight: 72 kg

DRUGS (1)
  1. GILENYA [Suspect]
     Active Substance: FINGOLIMOD HYDROCHLORIDE
     Indication: MULTIPLE SCLEROSIS
     Dosage: 0.5 MG, QD
     Route: 048
     Dates: start: 20200301

REACTIONS (11)
  - Near death experience [Unknown]
  - Dyspnoea [Unknown]
  - Cardiac disorder [Not Recovered/Not Resolved]
  - Electric shock [Unknown]
  - Cerebral disorder [Not Recovered/Not Resolved]
  - Accident at work [Unknown]
  - Cardiac arrest [Not Recovered/Not Resolved]
  - Critical illness [Not Recovered/Not Resolved]
  - Pyrexia [Not Recovered/Not Resolved]
  - Coma [Not Recovered/Not Resolved]
  - Liver disorder [Not Recovered/Not Resolved]

NARRATIVE: CASE EVENT DATE: 20200918
